FAERS Safety Report 4536729-4 (Version None)
Quarter: 2004Q4

REPORT INFORMATION
  Report Type: 
  Country: None (occurrence: None)
  Receive Date: 20041223
  Receipt Date: 20041215
  Transmission Date: 20050328
  Serious: Yes (Other)
  Sender: FDA-Public Use
  Company Number: FR-JNJFOC-20041204639

PATIENT
  Age: 70 Year
  Sex: Female

DRUGS (1)
  1. RISPERDAL [Suspect]
     Indication: DELUSION
     Route: 049

REACTIONS (4)
  - C-REACTIVE PROTEIN INCREASED [None]
  - COGWHEEL RIGIDITY [None]
  - GENERAL PHYSICAL HEALTH DETERIORATION [None]
  - HYPERTHERMIA [None]
